FAERS Safety Report 21106339 (Version 1)
Quarter: 2022Q3

REPORT INFORMATION
  Report Type: Spontaneous
  Country: CH (occurrence: CH)
  Receive Date: 20220720
  Receipt Date: 20220720
  Transmission Date: 20221027
  Serious: Yes (Other)
  Sender: FDA-Public Use
  Company Number: None

PATIENT

DRUGS (5)
  1. VOLTARENE (DICLOFENAC SODIUM) [Suspect]
     Active Substance: DICLOFENAC SODIUM
     Indication: Product used for unknown indication
     Dosage: 75 MG
     Route: 048
     Dates: start: 2019, end: 20210320
  2. VOLTARENE (DICLOFENAC SODIUM) [Suspect]
     Active Substance: DICLOFENAC SODIUM
     Dosage: 50 MG
     Route: 048
     Dates: start: 20210320, end: 20210701
  3. PAMIDRONATE DISODIUM [Suspect]
     Active Substance: PAMIDRONATE DISODIUM
     Indication: Chronic recurrent multifocal osteomyelitis
     Dosage: 30 MG
     Route: 042
     Dates: start: 202003
  4. CALCIUM CARBONATE\CHOLECALCIFEROL [Concomitant]
     Active Substance: CALCIUM CARBONATE\CHOLECALCIFEROL
     Indication: Product used for unknown indication
     Dosage: UNK
  5. DAFALGAN [Concomitant]
     Active Substance: ACETAMINOPHEN
     Indication: Product used for unknown indication
     Dosage: AS NECESSARY

REACTIONS (1)
  - Aphthous ulcer [Recovered/Resolved]

NARRATIVE: CASE EVENT DATE: 20201201
